FAERS Safety Report 11160246 (Version 1)
Quarter: 2015Q2

REPORT INFORMATION
  Report Type: Spontaneous
  Country: TR (occurrence: TR)
  Receive Date: 20150603
  Receipt Date: 20150603
  Transmission Date: 20150821
  Serious: Yes (Hospitalization)
  Sender: FDA-Public Use
  Company Number: TR-AMGEN-TURSP2014093702

PATIENT
  Age: 52 Year
  Sex: Female
  Weight: 110 kg

DRUGS (12)
  1. VASOXEN [Concomitant]
     Dosage: UNK
  2. AIRFIX [Concomitant]
     Active Substance: MONTELUKAST SODIUM
     Dosage: UNK
  3. CYMBALTA [Concomitant]
     Active Substance: DULOXETINE HYDROCHLORIDE
     Dosage: UNK
  4. SOLIAN [Concomitant]
     Active Substance: AMISULPRIDE
     Dosage: UNK
  5. TRIPLUS [Concomitant]
     Dosage: UNK
  6. DETRUSITOL [Concomitant]
     Active Substance: TOLTERODINE TARTRATE
     Dosage: UNK
  7. TELVIS PLUS [Concomitant]
     Dosage: UNK
  8. TEOKAP [Concomitant]
     Active Substance: THEOPHYLLINE ANHYDROUS
     Dosage: UNK
  9. GLANGE [Concomitant]
     Dosage: UNK
  10. ENBREL [Suspect]
     Active Substance: ETANERCEPT
     Indication: ANKYLOSING SPONDYLITIS
     Dosage: 50 MG, WEEKLY
     Route: 058
     Dates: start: 20140217, end: 201411
  11. FOSTER                             /06206901/ [Concomitant]
     Dosage: UNK
  12. ENBREL [Suspect]
     Active Substance: ETANERCEPT
     Dosage: 50 MG, WEEKLY
     Route: 058
     Dates: start: 20141127

REACTIONS (4)
  - Pain [Not Recovered/Not Resolved]
  - Asthma [Recovering/Resolving]
  - Hyperhidrosis [Recovered/Resolved]
  - Bronchitis [Recovered/Resolved]

NARRATIVE: CASE EVENT DATE: 20141124
